FAERS Safety Report 20386564 (Version 2)
Quarter: 2022Q1

REPORT INFORMATION
  Report Type: Report from Study
  Country: BD (occurrence: BD)
  Receive Date: 20220127
  Receipt Date: 20220202
  Transmission Date: 20220423
  Serious: Yes (Death)
  Sender: FDA-Public Use
  Company Number: BD-NOVARTISPH-NVSC2022BD017734

PATIENT
  Age: 70 Year
  Sex: Male

DRUGS (1)
  1. ACLASTA [Suspect]
     Active Substance: ZOLEDRONIC ACID
     Indication: Osteoporosis
     Dosage: UNK, Q12MO, (5/100 MG/ML)
     Route: 042
     Dates: start: 202001, end: 202101

REACTIONS (1)
  - Death [Fatal]

NARRATIVE: CASE EVENT DATE: 20220111
